FAERS Safety Report 6124099-X (Version None)
Quarter: 2009Q1

REPORT INFORMATION
  Report Type: 
  Country: None (occurrence: None)
  Receive Date: 20090319
  Receipt Date: 20090311
  Transmission Date: 20090719
  Serious: Yes (Hospitalization, Other)
  Sender: FDA-Public Use
  Company Number: DE-ABBOTT-09P-062-0562195-00

PATIENT
  Sex: Male
  Weight: 86 kg

DRUGS (3)
  1. HUMIRA [Suspect]
     Indication: PSORIATIC ARTHROPATHY
     Route: 058
     Dates: start: 20071201
  2. METHOTREXATE [Concomitant]
     Indication: PSORIATIC ARTHROPATHY
     Route: 048
  3. DICLOFENAC [Concomitant]
     Indication: PSORIATIC ARTHROPATHY
     Route: 048

REACTIONS (1)
  - ANGINA UNSTABLE [None]
